FAERS Safety Report 4662818-X (Version None)
Quarter: 2005Q2

REPORT INFORMATION
  Report Type: 
  Country: None (occurrence: None)
  Receive Date: 20050512
  Receipt Date: 20050427
  Transmission Date: 20051028
  Serious: Yes (Other)
  Sender: FDA-Public Use
  Company Number: USA050393540

PATIENT
  Age: 71 Year
  Sex: Male
  Weight: 125 kg

DRUGS (7)
  1. CYMBALTA [Suspect]
     Indication: DIABETIC NEUROPATHY
     Dosage: 60 MG/ 2 DAY
     Dates: start: 20050208, end: 20050308
  2. NEURONTIN [Concomitant]
  3. TOPROL-XL [Concomitant]
  4. LANOXIN [Concomitant]
  5. COUMADIN [Concomitant]
  6. DIOVAN [Concomitant]
  7. CARDURA [Concomitant]

REACTIONS (2)
  - BLOOD PRESSURE INCREASED [None]
  - CONDITION AGGRAVATED [None]
